FAERS Safety Report 21980082 (Version 2)
Quarter: 2023Q1

REPORT INFORMATION
  Report Type: Spontaneous
  Country: DE (occurrence: DE)
  Receive Date: 20230210
  Receipt Date: 20230220
  Transmission Date: 20230417
  Serious: Yes (Other)
  Sender: FDA-Public Use
  Company Number: DE-TAKEDA-2023TUS012694

PATIENT
  Age: 38 Year
  Sex: Female

DRUGS (5)
  1. MESALAMINE [Suspect]
     Active Substance: MESALAMINE
     Indication: Colitis ulcerative
     Dosage: UNK
     Route: 065
  2. ENTYVIO [Suspect]
     Active Substance: VEDOLIZUMAB
     Indication: Colitis ulcerative
     Dosage: UNK
     Route: 058
  3. CORTISONE [Suspect]
     Active Substance: CORTISONE
     Indication: Agitation
     Dosage: UNK
     Route: 065
  4. HYDROCORTISONE ACETATE [Suspect]
     Active Substance: HYDROCORTISONE ACETATE
     Indication: Product used for unknown indication
     Dosage: UNK
     Route: 065
  5. ADALIMUMAB [Suspect]
     Active Substance: ADALIMUMAB
     Indication: Product used for unknown indication
     Dosage: UNK
     Route: 065

REACTIONS (8)
  - Cytomegalovirus colitis [Unknown]
  - Tuberculosis [Unknown]
  - Frequent bowel movements [Recovering/Resolving]
  - Eating disorder [Recovering/Resolving]
  - Anal incontinence [Unknown]
  - Viral infection [Unknown]
  - Fatigue [Unknown]
  - Colitis [Unknown]
